FAERS Safety Report 10516773 (Version 1)
Quarter: 2014Q4

REPORT INFORMATION
  Report Type: Spontaneous
  Country: NL (occurrence: NL)
  Receive Date: 20141014
  Receipt Date: 20141014
  Transmission Date: 20150528
  Serious: Yes (Life-Threatening, Hospitalization)
  Sender: FDA-Public Use
  Company Number: NL-BRISTOL-MYERS SQUIBB COMPANY-21469473

PATIENT
  Age: 77 Year
  Sex: Male
  Weight: 62 kg

DRUGS (11)
  1. GRANISETRON [Concomitant]
     Active Substance: GRANISETRON
  2. DEXAMETHASONE. [Concomitant]
     Active Substance: DEXAMETHASONE
  3. ETOPOSIDE. [Suspect]
     Active Substance: ETOPOSIDE
     Indication: LUNG NEOPLASM MALIGNANT
     Dosage: 1DF=20MG/ML
     Dates: start: 20140414
  4. APREPITANT. [Concomitant]
     Active Substance: APREPITANT
  5. CARBOPLATIN. [Suspect]
     Active Substance: CARBOPLATIN
     Dosage: 10MG/ML
     Route: 042
     Dates: start: 20140414
  6. BISOPROLOL [Concomitant]
     Active Substance: BISOPROLOL
  7. CARDOXIN [Concomitant]
  8. COLCHICINE. [Concomitant]
     Active Substance: COLCHICINE
  9. ACETYLSALICYLIC ACID [Concomitant]
     Active Substance: ASPIRIN
  10. ALLOPURINOL. [Concomitant]
     Active Substance: ALLOPURINOL
  11. ATORVASTATIN [Concomitant]
     Active Substance: ATORVASTATIN

REACTIONS (2)
  - Hypotension [Not Recovered/Not Resolved]
  - Angina pectoris [Not Recovered/Not Resolved]
